FAERS Safety Report 7446053-8 (Version None)
Quarter: 2011Q2

REPORT INFORMATION
  Report Type: 
  Country: None (occurrence: None)
  Receive Date: 20110429
  Receipt Date: 20110425
  Transmission Date: 20111010
  Serious: Yes (Other)
  Sender: FDA-Public Use
  Company Number: BR-PFIZER INC-2011085095

PATIENT
  Age: 49 Year
  Sex: Female
  Weight: 83 kg

DRUGS (2)
  1. LYRICA [Suspect]
     Indication: BACK PAIN
     Dosage: 150 MG, 2X/DAY
     Route: 048
     Dates: start: 20110224, end: 20110305
  2. LYRICA [Suspect]
     Dosage: 150 MG, 2X/DAY
     Route: 048
     Dates: start: 20110306, end: 20110401

REACTIONS (9)
  - WEIGHT INCREASED [None]
  - TACHYCARDIA [None]
  - OEDEMA PERIPHERAL [None]
  - GAIT DISTURBANCE [None]
  - AMNESIA [None]
  - VERTIGO [None]
  - COORDINATION ABNORMAL [None]
  - CHEST PAIN [None]
  - IMPAIRED DRIVING ABILITY [None]
